FAERS Safety Report 9966171 (Version 1)
Quarter: 2014Q1

REPORT INFORMATION
  Report Type: Report from Study
  Country: US (occurrence: US)
  Receive Date: 20140305
  Receipt Date: 20140305
  Transmission Date: 20141002
  Serious: No
  Sender: FDA-Public Use
  Company Number: US-ABBVIE-13P-163-1122937-00

PATIENT
  Age: 56 Year
  Sex: Female

DRUGS (12)
  1. HUMIRA [Suspect]
     Indication: RHEUMATOID ARTHRITIS
     Dates: start: 20130221
  2. FOLIC ACID [Concomitant]
     Indication: PRODUCT USED FOR UNKNOWN INDICATION
  3. FOLIC ACID [Concomitant]
     Indication: RHEUMATOID ARTHRITIS
  4. OMEPRAZOLE [Concomitant]
     Indication: GASTROOESOPHAGEAL REFLUX DISEASE
     Dosage: IN THE MORNING
  5. ESTRADIOL [Concomitant]
     Indication: PRODUCT USED FOR UNKNOWN INDICATION
  6. RANITIDINE [Concomitant]
     Indication: GASTROOESOPHAGEAL REFLUX DISEASE
     Dosage: 1-2 TABS
  7. FISH OIL [Concomitant]
     Indication: VITAMIN SUPPLEMENTATION
  8. FLAX SEED OIL [Concomitant]
     Indication: VITAMIN SUPPLEMENTATION
  9. CALCIUM [Concomitant]
     Indication: PRODUCT USED FOR UNKNOWN INDICATION
  10. VITAMIIN C [Concomitant]
     Indication: PRODUCT USED FOR UNKNOWN INDICATION
  11. VITAMIN D [Concomitant]
     Indication: PRODUCT USED FOR UNKNOWN INDICATION
  12. IRON [Concomitant]
     Indication: PRODUCT USED FOR UNKNOWN INDICATION

REACTIONS (2)
  - Injection site haemorrhage [Recovering/Resolving]
  - Injection site bruising [Recovering/Resolving]
